FAERS Safety Report 6814185-0 (Version None)
Quarter: 2010Q3

REPORT INFORMATION
  Report Type: 
  Country: None (occurrence: None)
  Receive Date: 20100702
  Receipt Date: 20100628
  Transmission Date: 20110219
  Serious: Yes (Life-Threatening)
  Sender: FDA-Public Use
  Company Number: FR-ASTRAZENECA-2010SE30064

PATIENT
  Age: 24846 Day
  Sex: Male

DRUGS (3)
  1. DIPRIVAN [Suspect]
     Indication: GENERAL ANAESTHESIA
     Route: 042
     Dates: start: 20100408, end: 20100408
  2. CELOCURINE [Suspect]
     Indication: GENERAL ANAESTHESIA
     Route: 042
     Dates: start: 20100408, end: 20100408
  3. SUFENTA PRESERVATIVE FREE [Suspect]
     Indication: GENERAL ANAESTHESIA
     Route: 042
     Dates: start: 20100408, end: 20100408

REACTIONS (4)
  - BRONCHOSPASM [None]
  - ERYTHEMA [None]
  - HYPOTENSION [None]
  - SINUS TACHYCARDIA [None]
